FAERS Safety Report 9027748 (Version 1)
Quarter: 2013Q1

REPORT INFORMATION
  Report Type: Spontaneous
  Country: US (occurrence: US)
  Receive Date: 20130123
  Receipt Date: 20130123
  Transmission Date: 20140127
  Serious: Yes (Hospitalization)
  Sender: FDA-Public Use
  Company Number: US-B.I. PHARMACEUTICALS,INC./RIDGEFIELD-2013-BI-01051BP

PATIENT
  Age: 68 None
  Sex: Male
  Weight: 41 kg

DRUGS (1)
  1. PRADAXA [Suspect]
     Indication: ATRIAL FIBRILLATION
     Dosage: 300 MG
     Dates: start: 2011

REACTIONS (5)
  - Heart valve incompetence [Unknown]
  - Pneumonia aspiration [Unknown]
  - Abnormal loss of weight [Not Recovered/Not Resolved]
  - Eating disorder [Not Recovered/Not Resolved]
  - Cognitive disorder [Not Recovered/Not Resolved]
